FAERS Safety Report 7282899-7 (Version None)
Quarter: 2011Q1

REPORT INFORMATION
  Report Type: 
  Country: None (occurrence: None)
  Receive Date: 20110209
  Receipt Date: 20110201
  Transmission Date: 20110831
  Serious: Yes (Hospitalization)
  Sender: FDA-Public Use
  Company Number: US-BAYER-201016085NA

PATIENT
  Sex: Female

DRUGS (2)
  1. YAZ [Suspect]
     Indication: PREMENSTRUAL SYNDROME
     Dosage: SAMPLES WERE RECEIVED FROM 2001-2008
     Route: 048
  2. YASMIN [Suspect]

REACTIONS (2)
  - MENTAL DISORDER [None]
  - CHOLECYSTECTOMY [None]
